FAERS Safety Report 12289637 (Version 1)
Quarter: 2016Q2

REPORT INFORMATION
  Report Type: Spontaneous
  Country: US (occurrence: US)
  Receive Date: 20160421
  Receipt Date: 20160421
  Transmission Date: 20160815
  Serious: No
  Sender: FDA-Public Use
  Company Number: US-TEVA-554097USA

PATIENT
  Age: 60 Year
  Sex: Female

DRUGS (3)
  1. CEPHALEXIN. [Suspect]
     Active Substance: CEPHALEXIN
     Route: 065
     Dates: start: 20141003
  2. FLUTICASONE [Concomitant]
     Active Substance: FLUTICASONE\FLUTICASONE PROPIONATE
     Dates: start: 20141003
  3. CLARITIN [Concomitant]
     Active Substance: LORATADINE
     Dates: start: 20141003

REACTIONS (6)
  - Alopecia [Recovering/Resolving]
  - Hair injury [Unknown]
  - Hair texture abnormal [Unknown]
  - Adjustment disorder with depressed mood [Unknown]
  - Product substitution issue [Unknown]
  - Stress [Recovering/Resolving]

NARRATIVE: CASE EVENT DATE: 201410
